FAERS Safety Report 20245066 (Version 1)
Quarter: 2021Q4

REPORT INFORMATION
  Report Type: Spontaneous
  Country: US (occurrence: None)
  Receive Date: 20211229
  Receipt Date: 20211229
  Transmission Date: 20220303
  Serious: Yes (Hospitalization, Other)
  Sender: FDA-Public Use
  Company Number: US-Hikma Pharmaceuticals USA Inc.-US-H14001-21-05441

PATIENT
  Age: 65 Year
  Sex: Female

DRUGS (3)
  1. PREDNISONE [Suspect]
     Active Substance: PREDNISONE
     Indication: Immunosuppression
     Route: 065
  2. PREDNISONE [Suspect]
     Active Substance: PREDNISONE
     Route: 065
  3. PEMBROLIZUMAB [Concomitant]
     Active Substance: PEMBROLIZUMAB
     Indication: Basosquamous carcinoma
     Route: 065

REACTIONS (7)
  - Bile duct stenosis [Unknown]
  - Septic shock [Unknown]
  - Cholangitis infective [Unknown]
  - Adrenal insufficiency [Unknown]
  - Abscess fungal [Unknown]
  - Liver abscess [Unknown]
  - Fungaemia [Unknown]
